FAERS Safety Report 7795158-0 (Version None)
Quarter: 2011Q4

REPORT INFORMATION
  Report Type: 
  Country: None (occurrence: None)
  Receive Date: 20111004
  Receipt Date: 20110927
  Transmission Date: 20120403
  Serious: Yes (Other)
  Sender: FDA-Public Use
  Company Number: US-JNJFOC-20110811889

PATIENT
  Sex: Male
  Weight: 99.79 kg

DRUGS (3)
  1. BLOOD PRESSURE MEDICATION NOS [Concomitant]
     Indication: BLOOD PRESSURE
     Route: 065
  2. TRAZODONE HYDROCHLORIDE [Concomitant]
     Route: 065
  3. NUCYNTA [Suspect]
     Indication: PAIN
     Route: 048
     Dates: start: 20110708

REACTIONS (2)
  - CONTRAINDICATION TO MEDICAL TREATMENT [None]
  - ASTHMA [None]
